FAERS Safety Report 15602172 (Version 3)
Quarter: 2018Q4

REPORT INFORMATION
  Report Type: Spontaneous
  Country: FR (occurrence: FR)
  Receive Date: 20181109
  Receipt Date: 20181214
  Transmission Date: 20190205
  Serious: Yes (Death)
  Sender: FDA-Public Use
  Company Number: FR-AMGEN-FRASP2018156081

PATIENT
  Age: 65 Year
  Sex: Female
  Weight: 86 kg

DRUGS (4)
  1. XELODA [Suspect]
     Active Substance: CAPECITABINE
     Dosage: 2000 MG, QD
     Route: 048
     Dates: start: 20180801
  2. AUGMENTIN [Suspect]
     Active Substance: AMOXICILLIN\CLAVULANATE POTASSIUM
     Indication: PRODUCT USED FOR UNKNOWN INDICATION
     Dosage: UNK
     Route: 048
  3. XGEVA [Suspect]
     Active Substance: DENOSUMAB
     Indication: PRODUCT USED FOR UNKNOWN INDICATION
     Dosage: 120 MG, UNK
     Route: 042
     Dates: start: 2018
  4. XELODA [Suspect]
     Active Substance: CAPECITABINE
     Indication: BREAST CANCER METASTATIC
     Dosage: 2000 MG, QD
     Route: 048
     Dates: start: 20180911, end: 20180925

REACTIONS (6)
  - Multiple organ dysfunction syndrome [Fatal]
  - Diarrhoea [Fatal]
  - Enteritis [Fatal]
  - Abdominal pain [Fatal]
  - Shock [Fatal]
  - Vomiting [Fatal]

NARRATIVE: CASE EVENT DATE: 20180924
